FAERS Safety Report 4575394-7 (Version None)
Quarter: 2005Q1

REPORT INFORMATION
  Report Type: 
  Country: None (occurrence: None)
  Receive Date: 20050131
  Receipt Date: 20050131
  Transmission Date: 20050727
  Serious: Yes (Death, Life-Threatening)
  Sender: FDA-Public Use
  Company Number: None

PATIENT
  Age: 44 Year
  Sex: Male
  Weight: 67 kg

DRUGS (4)
  1. CYCLOSPORINE [Suspect]
     Indication: LIVER FUNCTION TEST ABNORMAL
     Dosage: PO
     Route: 048
     Dates: start: 20040726
  2. CYCLOSPORINE [Suspect]
     Indication: RENAL TUBULAR NECROSIS
     Dosage: PO
     Route: 048
     Dates: start: 20040726
  3. MYCOPHENOLATE ROCHE [Suspect]
     Dosage: PO
     Route: 048
     Dates: start: 20040726
  4. PREDNISONE [Concomitant]

REACTIONS (4)
  - BLOOD CREATINE INCREASED [None]
  - LIVER FUNCTION TEST ABNORMAL [None]
  - RENAL TUBULAR NECROSIS [None]
  - SEPTIC SHOCK [None]
